FAERS Safety Report 5467897-8 (Version None)
Quarter: 2007Q3

REPORT INFORMATION
  Report Type: 
  Country: None (occurrence: None)
  Receive Date: 20070926
  Receipt Date: 20070918
  Transmission Date: 20080115
  Serious: Yes (Hospitalization)
  Sender: FDA-Public Use
  Company Number: US-JNJFOC-20070804640

PATIENT
  Sex: Male
  Weight: 95.71 kg

DRUGS (3)
  1. REMICADE [Suspect]
     Dosage: 500MG
     Route: 042
  2. REMICADE [Suspect]
     Indication: COLITIS ULCERATIVE
     Route: 042
  3. REMICADE [Suspect]
     Indication: CROHN'S DISEASE
     Dosage: STOPPED FOR } 1 YEAR
     Route: 042

REACTIONS (10)
  - CHEST DISCOMFORT [None]
  - DYSPNOEA [None]
  - EYE PRURITUS [None]
  - EYE SWELLING [None]
  - FLUSHING [None]
  - INFUSION RELATED REACTION [None]
  - JOINT STIFFNESS [None]
  - RASH [None]
  - SWELLING FACE [None]
  - WHEEZING [None]
